FAERS Safety Report 8239760-0 (Version None)
Quarter: 2012Q1

REPORT INFORMATION
  Report Type: 
  Country: None (occurrence: None)
  Receive Date: 20120328
  Receipt Date: 20120316
  Transmission Date: 20120608
  Serious: Yes (Other)
  Sender: FDA-Public Use
  Company Number: US-SANOFI-AVENTIS-2012SA008612

PATIENT
  Age: 60 Year
  Sex: Female

DRUGS (6)
  1. RILUTEK [Suspect]
     Indication: STEM CELL TRANSPLANT
     Route: 048
     Dates: start: 20111001
  2. RILUTEK [Suspect]
     Indication: BLINDNESS
     Route: 048
     Dates: start: 20111001
  3. ALL OTHER THERAPEUTIC PRODUCTS [Concomitant]
  4. HERBAL PREPARATION [Concomitant]
  5. ARICEPT [Concomitant]
  6. CALCIUM CHANNEL BLOCKERS [Concomitant]

REACTIONS (3)
  - OFF LABEL USE [None]
  - THYROID DISORDER [None]
  - WEIGHT INCREASED [None]
